FAERS Safety Report 10221141 (Version 2)
Quarter: 2014Q3

REPORT INFORMATION
  Report Type: Spontaneous
  Country: BR (occurrence: BR)
  Receive Date: 20140606
  Receipt Date: 20140729
  Transmission Date: 20150326
  Serious: Yes (Other)
  Sender: FDA-Public Use
  Company Number: BR-PFIZER INC-2014151598

PATIENT
  Age: 39 Year
  Sex: Female

DRUGS (2)
  1. DOSTINEX [Suspect]
     Active Substance: CABERGOLINE
     Indication: HYPERPROLACTINAEMIA
     Dosage: 0.25 MG, 2X/WEEK
     Route: 048
     Dates: start: 201206
  2. DOSTINEX [Suspect]
     Active Substance: CABERGOLINE
     Indication: PITUITARY TUMOUR BENIGN

REACTIONS (4)
  - Sleep disorder [Unknown]
  - Hair growth abnormal [Unknown]
  - Alopecia [Not Recovered/Not Resolved]
  - Depression [Unknown]
